FAERS Safety Report 8987631 (Version 2)
Quarter: 2013Q2

REPORT INFORMATION
  Report Type: Spontaneous
  Country: DK (occurrence: CH)
  Receive Date: 20121227
  Receipt Date: 20130422
  Transmission Date: 20140414
  Serious: Yes (Other)
  Sender: FDA-Public Use
  Company Number: CH-FRI-1000026462

PATIENT
  Sex: Female

DRUGS (3)
  1. ESCITALOPRAM [Suspect]
     Dosage: 20 MG
  2. SEROQUEL [Suspect]
     Dosage: 600 MG
  3. LABETALOL [Concomitant]

REACTIONS (4)
  - Uterine contractions during pregnancy [Recovered/Resolved]
  - Generalised oedema [Recovered/Resolved]
  - Caesarean section [Recovered/Resolved]
  - Pregnancy [Recovered/Resolved]
